FAERS Safety Report 7927483-4 (Version None)
Quarter: 2011Q4

REPORT INFORMATION
  Report Type: 
  Country: None (occurrence: None)
  Receive Date: 20111118
  Receipt Date: 20111114
  Transmission Date: 20120403
  Serious: Yes (Life-Threatening, Hospitalization, Other)
  Sender: FDA-Public Use
  Company Number: DE-PFIZER INC-2011236235

PATIENT
  Age: 78 Year
  Sex: Female
  Weight: 94 kg

DRUGS (2)
  1. UNASYN [Suspect]
     Indication: ERYSIPELAS
     Dosage: 1500 MG, 2X/DAY
     Route: 042
     Dates: start: 20110821, end: 20110821
  2. UNASYN [Suspect]
     Dosage: 1500 MG, 3X/DAY
     Route: 042
     Dates: start: 20110822, end: 20110823

REACTIONS (1)
  - RENAL FAILURE ACUTE [None]
